FAERS Safety Report 7007932-9 (Version None)
Quarter: 2010Q3

REPORT INFORMATION
  Report Type: 
  Country: None (occurrence: None)
  Receive Date: 20100922
  Receipt Date: 20100910
  Transmission Date: 20110219
  Serious: Yes (Death)
  Sender: FDA-Public Use
  Company Number: JP-PFIZER INC-2010102270

PATIENT
  Age: 63 Year
  Sex: Male
  Weight: 55 kg

DRUGS (8)
  1. SILDENAFIL CITRATE [Suspect]
     Indication: PULMONARY ARTERIAL HYPERTENSION
     Dosage: 20 MG, 3X/DAY
     Dates: start: 20090701
  2. ADALAT CC [Concomitant]
     Indication: PULMONARY HYPERTENSION
     Dosage: UNK
     Route: 048
     Dates: start: 20070526, end: 20100808
  3. DIOVANE [Concomitant]
     Dosage: UNK
     Route: 048
     Dates: start: 20070314, end: 20100808
  4. ANPLAG [Concomitant]
     Dosage: UNK
     Route: 048
     Dates: start: 20080128, end: 20100808
  5. MEXITIL [Concomitant]
     Dosage: UNK
     Route: 048
     Dates: start: 20070314, end: 20100808
  6. LANDSEN [Concomitant]
     Dosage: UNK
     Route: 048
     Dates: start: 20081104, end: 20100808
  7. NEUROVITAN [Concomitant]
     Dosage: UNK
     Route: 048
     Dates: start: 20090214, end: 20100808
  8. DORNER [Concomitant]
     Dosage: UNK
     Dates: end: 20100808

REACTIONS (1)
  - PULMONARY HYPERTENSION [None]
